FAERS Safety Report 10029056 (Version 2)
Quarter: 2014Q1

REPORT INFORMATION
  Report Type: Spontaneous
  Country: FR (occurrence: FR)
  Receive Date: 20140321
  Receipt Date: 20140326
  Transmission Date: 20141002
  Serious: Yes (Life-Threatening, Hospitalization)
  Sender: FDA-Public Use
  Company Number: PHHY2014FR030726

PATIENT
  Age: 16 Year
  Sex: Male

DRUGS (20)
  1. RISPERIDONE [Suspect]
     Indication: SCHIZOPHRENIA
     Dosage: 1 MG/DAY
     Route: 048
  2. CLONAZEPAM [Suspect]
     Indication: SCHIZOPHRENIA
     Dosage: 0.05 MG/KG, UNK
     Route: 048
  3. CLONAZEPAM [Suspect]
     Dosage: 10 DRP, TID
     Route: 048
  4. CLONAZEPAM [Suspect]
     Route: 042
  5. CLONAZEPAM [Suspect]
     Dosage: 0.05 MG/KG, UNK
     Route: 048
  6. CLONAZEPAM [Suspect]
     Dosage: 0.05 MG/KG, UNK
     Route: 048
  7. CLONAZEPAM [Suspect]
     Dosage: 0.05 MG/KG, UNK
     Route: 048
  8. LORAZEPAM [Suspect]
     Dosage: 5 MG/DAY
     Route: 042
  9. LORAZEPAM [Suspect]
     Dosage: 5 MG/DAY
  10. LORAZEPAM [Suspect]
     Dosage: 5 MG/DAY
     Route: 042
  11. LORAZEPAM [Suspect]
     Dosage: 5 MG/DAY
     Route: 042
  12. CARBAMAZEPINE [Suspect]
     Dosage: 10 MG/KG/DAY
     Route: 048
  13. CARBAMAZEPINE [Suspect]
     Dosage: 10 MG/KG/DAY
  14. OLANZAPINE [Suspect]
     Dosage: 5 MG/DAY
  15. OLANZAPINE [Suspect]
     Dosage: 20 MG/DAY
  16. CLOZAPINE [Suspect]
     Dosage: 25 MG/DAY
  17. CLOZAPINE [Suspect]
     Dosage: 175 MG/DAY
  18. CLOZAPINE [Suspect]
     Dosage: 250 MG/DAY
  19. LITHIUM CARBONATE [Suspect]
     Dosage: 250 MG/DAY
  20. LITHIUM CARBONATE [Suspect]
     Dosage: 250 MG/DAY

REACTIONS (26)
  - Catatonia [Recovered/Resolved]
  - Movement disorder [Recovered/Resolved]
  - Waxy flexibility [Recovered/Resolved]
  - Bradyphrenia [Recovered/Resolved]
  - Eating disorder [Recovered/Resolved]
  - Hallucination, auditory [Recovered/Resolved]
  - Hallucination [Recovered/Resolved]
  - Abulia [Recovered/Resolved]
  - Delirium [Recovered/Resolved]
  - Amimia [Recovered/Resolved]
  - Blood creatine phosphokinase increased [Recovered/Resolved]
  - Suspiciousness [Recovered/Resolved]
  - General physical health deterioration [Recovered/Resolved]
  - Hypoglycaemia [Recovered/Resolved]
  - Depressive symptom [Recovered/Resolved]
  - Parkinson^s disease [Recovered/Resolved]
  - Weight increased [Recovered/Resolved]
  - Weight decreased [Recovered/Resolved]
  - Decreased appetite [Recovered/Resolved]
  - Skin discolouration [Recovered/Resolved]
  - Dizziness [Recovered/Resolved]
  - Peripheral coldness [Recovered/Resolved]
  - Sedation [Recovered/Resolved]
  - Fatigue [Recovered/Resolved]
  - Schizophrenia [Recovered/Resolved]
  - Drug ineffective [Unknown]
